FAERS Safety Report 21614912 (Version 1)
Quarter: 2022Q4

REPORT INFORMATION
  Report Type: Spontaneous
  Country: FR (occurrence: FR)
  Receive Date: 20221118
  Receipt Date: 20221118
  Transmission Date: 20230112
  Serious: Yes (Hospitalization)
  Sender: FDA-Public Use
  Company Number: FR-JNJFOC-20221138681

PATIENT
  Age: 64 Year
  Sex: Male

DRUGS (2)
  1. YONDELIS [Suspect]
     Active Substance: TRABECTEDIN
     Indication: Round cell liposarcoma
     Route: 065
     Dates: start: 202207
  2. YONDELIS [Suspect]
     Active Substance: TRABECTEDIN
     Route: 065
     Dates: start: 20220921

REACTIONS (2)
  - Cardiac failure [Recovered/Resolved with Sequelae]
  - Condition aggravated [Recovered/Resolved with Sequelae]

NARRATIVE: CASE EVENT DATE: 20220810
